FAERS Safety Report 6141228-2 (Version None)
Quarter: 2009Q2

REPORT INFORMATION
  Report Type: 
  Country: None (occurrence: None)
  Receive Date: 20090402
  Receipt Date: 20090326
  Transmission Date: 20091009
  Serious: Yes (Other)
  Sender: FDA-Public Use
  Company Number: PHHY2009GB11455

PATIENT
  Age: 16 Year
  Sex: Male

DRUGS (7)
  1. CYCLOSPORINE [Suspect]
     Indication: STEM CELL TRANSPLANT
  2. BUSULFAN [Concomitant]
     Dosage: 16 MG/KG
  3. ALEMTUZUMAB [Concomitant]
  4. PREDNISOLONE [Concomitant]
  5. MYCOPHENOLATE MOFETIL [Concomitant]
  6. TACROLIMUS [Concomitant]
  7. INFLIXIMAB [Concomitant]

REACTIONS (9)
  - BRONCHIECTASIS [None]
  - CHRONIC GRAFT VERSUS HOST DISEASE [None]
  - HYPERTENSION [None]
  - ORTHOPEDIC PROCEDURE [None]
  - OSTEONECROSIS [None]
  - OSTEOPOROSIS [None]
  - RENAL IMPAIRMENT [None]
  - TREMOR [None]
  - UPPER RESPIRATORY TRACT INFECTION [None]
